FAERS Safety Report 6304765-3 (Version None)
Quarter: 2009Q3

REPORT INFORMATION
  Report Type: 
  Country: None (occurrence: None)
  Receive Date: 20090811
  Receipt Date: 20090803
  Transmission Date: 20100115
  Serious: Yes (Other)
  Sender: FDA-Public Use
  Company Number: US-ASTRAZENECA-2009UW21758

PATIENT
  Age: 64 Year
  Sex: Female
  Weight: 63.5 kg

DRUGS (7)
  1. CRESTOR [Suspect]
     Indication: BLOOD CHOLESTEROL
     Route: 048
     Dates: start: 20090601
  2. CRESTOR [Suspect]
     Route: 048
  3. CRESTOR [Suspect]
     Route: 048
  4. SYNTHROID [Concomitant]
  5. LISINOPRIL [Concomitant]
     Route: 048
  6. FOSAMAX [Concomitant]
  7. IBUPROFEN [Concomitant]

REACTIONS (1)
  - NEUROPATHY PERIPHERAL [None]
